FAERS Safety Report 25982461 (Version 2)
Quarter: 2025Q4

REPORT INFORMATION
  Report Type: Spontaneous
  Country: US (occurrence: US)
  Receive Date: 20251031
  Receipt Date: 20251127
  Transmission Date: 20260117
  Serious: No
  Sender: AMGEN
  Company Number: US-AMGEN-USASP2025214174

PATIENT
  Age: 46 Year
  Sex: Female
  Weight: 73.3 kg

DRUGS (1)
  1. AIMOVIG [Suspect]
     Active Substance: ERENUMAB-AOOE
     Indication: Migraine prophylaxis
     Dosage: 140 MILLIGRAM, QMO
     Route: 058
     Dates: start: 202412

REACTIONS (7)
  - Accidental exposure to product [Unknown]
  - Occupational exposure to product [Unknown]
  - Incorrect disposal of product [Unknown]
  - Incorrect dose administered by device [Unknown]
  - Injection site pain [Unknown]
  - Headache [Not Recovered/Not Resolved]
  - Migraine [Unknown]

NARRATIVE: CASE EVENT DATE: 20251001
